FAERS Safety Report 25123001 (Version 1)
Quarter: 2025Q1

REPORT INFORMATION
  Report Type: Spontaneous
  Country: US (occurrence: None)
  Receive Date: 20250325
  Receipt Date: 20250325
  Transmission Date: 20250408
  Serious: Yes (Other)
  Sender: FDA-CTU
  Company Number: None

PATIENT
  Age: 79 Year
  Sex: Male

DRUGS (18)
  1. ADEMPAS [Suspect]
     Active Substance: RIOCIGUAT
     Indication: Pulmonary hypertension
     Dosage: FREQUENCY : TWICE A DAY;?
     Route: 048
     Dates: start: 20190213
  2. FUROSEMIDE [Concomitant]
     Active Substance: FUROSEMIDE
  3. bumulin N [Concomitant]
  4. INSULIN LISPRO [Concomitant]
     Active Substance: INSULIN LISPRO
  5. ATORVASTATIN [Concomitant]
     Active Substance: ATORVASTATIN
  6. ESCITALOPRAM [Concomitant]
     Active Substance: ESCITALOPRAM OXALATE
  7. PANTOPRAZOLE [Concomitant]
     Active Substance: PANTOPRAZOLE
  8. NEPHRO VITE RX [Concomitant]
     Active Substance: ASCORBIC ACID\BIOTIN\CALCIUM PANTOTHENATE\CYANOCOBALAMIN\FOLIC ACID\NIACINAMIDE\PYRIDOXINE HYDROCHLO
  9. MEXILETINE [Concomitant]
     Active Substance: MEXILETINE
  10. WARFARIN [Concomitant]
     Active Substance: WARFARIN
  11. MONTELUKAST [Concomitant]
     Active Substance: MONTELUKAST
  12. ipratropium inhl soln, [Concomitant]
  13. BISOPROLOL [Concomitant]
     Active Substance: BISOPROLOL
  14. wixela inhub, [Concomitant]
  15. FLONASE [Concomitant]
     Active Substance: FLUTICASONE PROPIONATE
  16. MAGNESIUM OXIDE [Concomitant]
     Active Substance: MAGNESIUM OXIDE
  17. calcium citrate-vit D3 [Concomitant]
  18. VITAMIN D3 [Concomitant]
     Active Substance: CHOLECALCIFEROL

REACTIONS (4)
  - Chronic obstructive pulmonary disease [None]
  - Pneumonia [None]
  - Ileus [None]
  - Femur fracture [None]

NARRATIVE: CASE EVENT DATE: 20250225
